FAERS Safety Report 15389488 (Version 1)
Quarter: 2018Q3

REPORT INFORMATION
  Report Type: Spontaneous
  Country: JP (occurrence: JP)
  Receive Date: 20180917
  Receipt Date: 20180917
  Transmission Date: 20181010
  Serious: Yes (Other)
  Sender: FDA-Public Use
  Company Number: JP-BRISTOL-MYERS SQUIBB COMPANY-BMS-2018-014120

PATIENT
  Age: 73 Year
  Sex: Male

DRUGS (1)
  1. OPDIVO [Suspect]
     Active Substance: NIVOLUMAB
     Indication: GASTRIC CANCER RECURRENT
     Dosage: UNK UNK, Q2MO
     Route: 041
     Dates: start: 20171019, end: 20171228

REACTIONS (2)
  - Hepatic function abnormal [Not Recovered/Not Resolved]
  - Cholangitis [Unknown]

NARRATIVE: CASE EVENT DATE: 20171228
